FAERS Safety Report 10769069 (Version 2)
Quarter: 2015Q1

REPORT INFORMATION
  Report Type: Report from Study
  Country: CA (occurrence: CA)
  Receive Date: 20150206
  Receipt Date: 20150218
  Transmission Date: 20150721
  Serious: Yes (Death, Hospitalization)
  Sender: FDA-Public Use
  Company Number: CA-JNJFOC-20150201619

PATIENT
  Sex: Male

DRUGS (3)
  1. ACETAMINOPHEN. [Suspect]
     Active Substance: ACETAMINOPHEN
     Route: 048
  2. ETHANOL [Suspect]
     Active Substance: ALCOHOL
     Indication: PRODUCT USED FOR UNKNOWN INDICATION
     Route: 048
  3. ACETAMINOPHEN. [Suspect]
     Active Substance: ACETAMINOPHEN
     Indication: PRODUCT USED FOR UNKNOWN INDICATION
     Dosage: 4-5 DAILY FOR SEVERAL DAYS
     Route: 048
     Dates: start: 19960506, end: 19960520

REACTIONS (6)
  - Toxicity to various agents [Fatal]
  - Coagulopathy [Fatal]
  - Overdose [Fatal]
  - Alcohol poisoning [Fatal]
  - Brain oedema [Fatal]
  - Hepatic failure [Fatal]
